FAERS Safety Report 4959826-8 (Version None)
Quarter: 2006Q1

REPORT INFORMATION
  Report Type: 
  Country: None (occurrence: None)
  Receive Date: 20060328
  Receipt Date: 20060317
  Transmission Date: 20060701
  Serious: Yes (Hospitalization, Other)
  Sender: FDA-Public Use
  Company Number: HQWYE262409JAN06

PATIENT
  Age: 17 Year
  Sex: Female
  Weight: 80.2 kg

DRUGS (15)
  1. RAPAMUNE [Suspect]
     Indication: PROPHYLAXIS AGAINST TRANSPLANT REJECTION
     Dosage: 12 MG 1X PER 1 DAY, ORAL; 10  MG 1X PER 1 DAY, ORAL
     Route: 048
     Dates: end: 20060106
  2. RAPAMUNE [Suspect]
     Indication: PROPHYLAXIS AGAINST TRANSPLANT REJECTION
     Dosage: 12 MG 1X PER 1 DAY, ORAL; 10  MG 1X PER 1 DAY, ORAL
     Route: 048
     Dates: start: 20051004
  3. CELLCEPT [Suspect]
     Dosage: 1 G 2X PER 1 DAY, ORAL
     Route: 048
  4. PREDNISONE TAB [Suspect]
     Dosage: 25 MG 1X PER 1 DAY, ORAL
     Route: 048
  5. VALCYTE [Concomitant]
  6. SEPTRA DS [Concomitant]
  7. K-PHOS                (POTASSIUM PHOSPHATE MONOBASIC) [Concomitant]
  8. SYNTHROID [Concomitant]
  9. ZANTAC [Concomitant]
  10. CALCITROL               (CALCIUM CARBONATE/ERGOCALCIFEROL/RETINOL) [Concomitant]
  11. ENALAPRIL MALEATE [Concomitant]
  12. NORVASC [Concomitant]
  13. LASIX [Concomitant]
  14. IRON (IRON) [Concomitant]
  15. NYSTATIN [Concomitant]

REACTIONS (5)
  - BACTERIA URINE IDENTIFIED [None]
  - CARDIAC MURMUR [None]
  - DRUG LEVEL INCREASED [None]
  - HYPOKALAEMIA [None]
  - KIDNEY TRANSPLANT REJECTION [None]
